FAERS Safety Report 7060034-8 (Version None)
Quarter: 2010Q4

REPORT INFORMATION
  Report Type: 
  Country: None (occurrence: None)
  Receive Date: 20101025
  Receipt Date: 20090924
  Transmission Date: 20110411
  Serious: No
  Sender: FDA-Public Use
  Company Number: US-BRISTOL-MYERS SQUIBB COMPANY-14792469

PATIENT
  Age: 46 Year
  Sex: Male
  Weight: 79 kg

DRUGS (7)
  1. BUSPAR [Suspect]
     Indication: ANXIETY
     Dosage: STARTED TAKING BUSPAR IN JAN-1996. 2 WEEKS AGO SWITCHED TO 5MG TABS FROM 10MG TABLETS.
     Dates: start: 20090101
  2. BUSPIRONE HCL TABS [Suspect]
     Dosage: GENERIC BUSPAR 10MG TABLETS.
  3. DESYREL [Concomitant]
  4. TYLENOL W/ CODEINE NO. 4 [Concomitant]
  5. RISPERDAL [Concomitant]
  6. IBUPROFEN [Concomitant]
  7. BENADRYL [Concomitant]

REACTIONS (2)
  - DRUG INEFFECTIVE [None]
  - MYALGIA [None]
